FAERS Safety Report 7162452-6 (Version None)
Quarter: 2010Q4

REPORT INFORMATION
  Report Type: 
  Country: None (occurrence: None)
  Receive Date: 20101215
  Receipt Date: 20091103
  Transmission Date: 20110411
  Serious: Yes (Other)
  Sender: FDA-Public Use
  Company Number: US-PFIZER INC-2009278297

PATIENT
  Sex: Male
  Weight: 97.506 kg

DRUGS (16)
  1. LYRICA [Suspect]
     Indication: NEURALGIA
     Dosage: 75 MG, 2X/DAY
     Route: 048
     Dates: start: 20090929, end: 20090930
  2. NITROSTAT [Concomitant]
     Dosage: UNK
  3. PLAVIX [Concomitant]
     Dosage: UNK
  4. POTASSIUM CHLORIDE [Concomitant]
     Dosage: UNK
  5. ALBUTEROL [Concomitant]
     Dosage: UNK
  6. SIMVASTATIN [Concomitant]
     Dosage: UNK
  7. ALLOPURINOL [Concomitant]
     Dosage: UNK
  8. ASPIRIN [Concomitant]
     Dosage: UNK
  9. BUMETANIDE [Concomitant]
     Dosage: UNK
  10. FISH OIL [Concomitant]
     Dosage: UNK
  11. LAMISIL [Concomitant]
     Dosage: UNK
  12. LORTAB [Concomitant]
     Dosage: UNK
  13. MAGNESIUM OXIDE [Concomitant]
     Dosage: UNK
  14. MELOXICAM [Concomitant]
     Dosage: UNK
  15. METOPROLOL SUCCINATE [Concomitant]
     Dosage: UNK
  16. SYMBICORT [Concomitant]
     Dosage: UNK

REACTIONS (5)
  - DYSKINESIA [None]
  - GAIT DISTURBANCE [None]
  - GRIP STRENGTH DECREASED [None]
  - MUSCULAR WEAKNESS [None]
  - TREMOR [None]
